FAERS Safety Report 17010184 (Version 8)
Quarter: 2022Q2

REPORT INFORMATION
  Report Type: Spontaneous
  Country: US (occurrence: US)
  Receive Date: 20191108
  Receipt Date: 20220511
  Transmission Date: 20220721
  Serious: Yes (Other)
  Sender: FDA-Public Use
  Company Number: US-PFIZER INC-2017543175

PATIENT
  Age: 90 Year
  Sex: Male

DRUGS (2)
  1. XELJANZ XR [Suspect]
     Active Substance: TOFACITINIB CITRATE
     Dosage: 11 MG, 2X/DAY
  2. XELJANZ XR [Suspect]
     Active Substance: TOFACITINIB CITRATE
     Dosage: 11 MG, DAILY

REACTIONS (9)
  - Deafness [Unknown]
  - Dementia Alzheimer^s type [Unknown]
  - Pain in extremity [Unknown]
  - Fall [Unknown]
  - Illness [Unknown]
  - Back disorder [Unknown]
  - Headache [Unknown]
  - Arthritis [Unknown]
  - Off label use [Unknown]
